FAERS Safety Report 10402730 (Version 2)
Quarter: 2014Q3

REPORT INFORMATION
  Report Type: Spontaneous
  Country: HU (occurrence: HU)
  Receive Date: 20140822
  Receipt Date: 20140910
  Transmission Date: 20150326
  Serious: Yes (Death, Hospitalization, Other)
  Sender: FDA-Public Use
  Company Number: HU-ALEXION PHARMACEUTICALS INC.-A201403171

PATIENT

DRUGS (2)
  1. SOLIRIS [Suspect]
     Active Substance: ECULIZUMAB
     Indication: HAEMOLYTIC URAEMIC SYNDROME
     Dosage: 60 MG/KG, QW
     Route: 042
     Dates: start: 20140515, end: 20140522
  2. SOLIRIS [Suspect]
     Active Substance: ECULIZUMAB
     Dosage: 60 MG/KG, Q3W
     Route: 042
     Dates: start: 20140522, end: 20140616

REACTIONS (8)
  - Pneumonia aspiration [Fatal]
  - Anaemia [Unknown]
  - Respiratory failure [Fatal]
  - Musculoskeletal disorder [Fatal]
  - Urine output decreased [Unknown]
  - Sepsis [Fatal]
  - Anuria [Unknown]
  - Thrombocytopenia [Unknown]
